FAERS Safety Report 24742595 (Version 1)
Quarter: 2024Q4

REPORT INFORMATION
  Report Type: Spontaneous
  Country: US (occurrence: None)
  Receive Date: 20241217
  Receipt Date: 20241217
  Transmission Date: 20250114
  Serious: Yes (Hospitalization)
  Sender: Public
  Company Number: None

PATIENT
  Age: 65 Year
  Weight: 74.5 kg

DRUGS (4)
  1. FLUOROURACIL [Suspect]
     Active Substance: FLUOROURACIL
     Dates: end: 20241127
  2. IRINOTECAN [Suspect]
     Active Substance: IRINOTECAN
     Dates: end: 20241126
  3. LEUCOVORIN CALCIUM [Suspect]
     Active Substance: LEUCOVORIN CALCIUM
     Dates: end: 20241126
  4. ELOXATIN [Suspect]
     Active Substance: OXALIPLATIN
     Dates: end: 20241126

REACTIONS (6)
  - Treatment delayed [None]
  - Abdominal pain [None]
  - Hypotension [None]
  - Malaise [None]
  - Hypokalaemia [None]
  - Necrotising soft tissue infection [None]

NARRATIVE: CASE EVENT DATE: 20241210
